FAERS Safety Report 22280572 (Version 1)
Quarter: 2023Q2

REPORT INFORMATION
  Report Type: Spontaneous
  Country: US (occurrence: US)
  Receive Date: 20230503
  Receipt Date: 20230503
  Transmission Date: 20230722
  Serious: No
  Sender: FDA-Public Use
  Company Number: US-TEVA-2023-US-2879897

PATIENT
  Sex: Male

DRUGS (1)
  1. ALBUTEROL SULFATE [Suspect]
     Active Substance: ALBUTEROL SULFATE
     Indication: Product used for unknown indication
     Route: 065

REACTIONS (8)
  - Dry mouth [Unknown]
  - Cough [Unknown]
  - Breath sounds abnormal [Unknown]
  - Tooth abscess [Unknown]
  - Drug ineffective [Unknown]
  - Nasopharyngitis [Unknown]
  - Product communication issue [Unknown]
  - Product storage error [Unknown]
